FAERS Safety Report 5247285-X (Version None)
Quarter: 2007Q1

REPORT INFORMATION
  Report Type: 
  Country: None (occurrence: None)
  Receive Date: 20070227
  Receipt Date: 20070212
  Transmission Date: 20070707
  Serious: Yes (Other)
  Sender: FDA-Public Use
  Company Number: PHBS2007TR02653

PATIENT
  Age: 5 Year
  Sex: Male

DRUGS (2)
  1. METHYLPHENIDATE [Suspect]
     Indication: ATTENTION DEFICIT/HYPERACTIVITY DISORDER
     Dosage: 15 MG/DAY
  2. RISPERDAL [Concomitant]
     Indication: OPPOSITIONAL DEFIANT DISORDER
     Dosage: 1 MG/DAY

REACTIONS (4)
  - ABNORMAL BEHAVIOUR [None]
  - AGGRESSION [None]
  - AGITATION [None]
  - IRRITABILITY [None]
